FAERS Safety Report 19619508 (Version 1)
Quarter: 2021Q3

REPORT INFORMATION
  Report Type: Spontaneous
  Country: US (occurrence: US)
  Receive Date: 20210728
  Receipt Date: 20210728
  Transmission Date: 20211014
  Serious: No
  Sender: FDA-Public Use
  Company Number: US-ROCHE-2677292

PATIENT
  Sex: Male

DRUGS (6)
  1. XELODA [Suspect]
     Active Substance: CAPECITABINE
     Indication: BREAST CANCER MALE
     Route: 048
  2. TUKYSA [Suspect]
     Active Substance: TUCATINIB
     Indication: BREAST CANCER MALE
     Route: 048
  3. TUKYSA [Suspect]
     Active Substance: TUCATINIB
     Indication: BLADDER CANCER
  4. XELODA [Suspect]
     Active Substance: CAPECITABINE
     Indication: BLADDER CANCER
  5. TUKYSA [Suspect]
     Active Substance: TUCATINIB
     Indication: METASTASES TO CENTRAL NERVOUS SYSTEM
  6. XELODA [Suspect]
     Active Substance: CAPECITABINE
     Indication: METASTASES TO CENTRAL NERVOUS SYSTEM

REACTIONS (11)
  - Decreased appetite [Unknown]
  - Off label use [Unknown]
  - Depression [Unknown]
  - Wrong technique in product usage process [Unknown]
  - Intentional product use issue [Unknown]
  - Red blood cell count decreased [Unknown]
  - Nausea [Unknown]
  - Fatigue [Unknown]
  - Malaise [Unknown]
  - Lethargy [Unknown]
  - Vomiting [Recovering/Resolving]
